FAERS Safety Report 5310511-2 (Version None)
Quarter: 2007Q2

REPORT INFORMATION
  Report Type: 
  Country: None (occurrence: None)
  Receive Date: 20070427
  Receipt Date: 20070419
  Transmission Date: 20071010
  Serious: Yes (Hospitalization, Other)
  Sender: FDA-Public Use
  Company Number: ES-ABBOTT-07P-144-0362042-00

PATIENT
  Age: 72 Year
  Sex: Female
  Weight: 45 kg

DRUGS (9)
  1. HUMIRA [Suspect]
     Indication: RHEUMATOID ARTHRITIS
     Route: 058
     Dates: start: 20061201, end: 20070301
  2. METHOTREXATE [Concomitant]
     Indication: RHEUMATOID ARTHRITIS
     Route: 048
     Dates: start: 20061001
  3. ACREL [Concomitant]
     Indication: DRUG USE FOR UNKNOWN INDICATION
     Route: 065
  4. OMEPRAZOL 40 [Concomitant]
     Indication: DRUG USE FOR UNKNOWN INDICATION
     Route: 048
  5. FERO-GRADUMENT [Concomitant]
     Indication: DRUG USE FOR UNKNOWN INDICATION
     Route: 048
  6. DEZACORT [Concomitant]
     Indication: DRUG USE FOR UNKNOWN INDICATION
     Route: 048
  7. FOLIC ACID [Concomitant]
     Indication: DRUG USE FOR UNKNOWN INDICATION
     Route: 048
  8. LORAZEPAM [Concomitant]
     Indication: DRUG USE FOR UNKNOWN INDICATION
     Route: 048
  9. PAROXETINE [Concomitant]
     Indication: DRUG USE FOR UNKNOWN INDICATION
     Route: 048

REACTIONS (14)
  - ALVEOLITIS [None]
  - COUGH [None]
  - CREPITATIONS [None]
  - DYSPNOEA [None]
  - HYPOGAMMAGLOBULINAEMIA [None]
  - INFLAMMATION [None]
  - JUGULAR VEIN DISTENSION [None]
  - LUNG INFILTRATION [None]
  - OXYGEN SATURATION DECREASED [None]
  - PYREXIA [None]
  - RESPIRATORY FAILURE [None]
  - RHONCHI [None]
  - TACHYPNOEA [None]
  - WEIGHT DECREASED [None]
